FAERS Safety Report 15297337 (Version 1)
Quarter: 2018Q3

REPORT INFORMATION
  Report Type: Spontaneous
  Country: US (occurrence: US)
  Receive Date: 20180808
  Receipt Date: 20180808
  Transmission Date: 20181010
  Serious: Yes (Other)
  Sender: FDA-Public Use
  Company Number: None

PATIENT
  Age: 67 Year
  Sex: Male

DRUGS (7)
  1. LOMOTIL [Concomitant]
     Active Substance: ATROPINE SULFATE\DIPHENOXYLATE HYDROCHLORIDE
  2. MAGACE ES [Concomitant]
  3. HYDROCODONE [Concomitant]
     Active Substance: HYDROCODONE
  4. TYLENOL [Concomitant]
     Active Substance: ACETAMINOPHEN
  5. LONSURF [Suspect]
     Active Substance: TIPIRACIL HYDROCHLORIDE\TRIFLURIDINE
     Indication: COLON CANCER
     Route: 048
     Dates: start: 20180713
  6. ELIQUIS [Concomitant]
     Active Substance: APIXABAN
  7. FENTANYL. [Concomitant]
     Active Substance: FENTANYL

REACTIONS (1)
  - Red blood cell count abnormal [None]

NARRATIVE: CASE EVENT DATE: 20180801
